FAERS Safety Report 4565478-1 (Version None)
Quarter: 2005Q1

REPORT INFORMATION
  Report Type: 
  Country: None (occurrence: None)
  Receive Date: 20050126
  Receipt Date: 20050111
  Transmission Date: 20050727
  Serious: Yes (Hospitalization, Other)
  Sender: FDA-Public Use
  Company Number: US_000848526

PATIENT
  Age: 51 Year
  Sex: Female
  Weight: 50 kg

DRUGS (6)
  1. HUMULIN N [Suspect]
     Indication: DIABETES MELLITUS
     Dosage: 32 U/DAY
     Dates: start: 19910101
  2. HUMULIN R [Suspect]
     Indication: DIABETES MELLITUS
     Dosage: 23 U/DAY
     Dates: start: 19910101
  3. HUMULIN L [Suspect]
     Indication: DIABETES MELLITUS
  4. INSULIN [Suspect]
     Dates: start: 19620101, end: 19930101
  5. PREDNISONE [Concomitant]
  6. NEORAL [Concomitant]

REACTIONS (5)
  - BLOOD GLUCOSE INCREASED [None]
  - DIABETES MELLITUS INADEQUATE CONTROL [None]
  - LEG AMPUTATION [None]
  - RENAL TRANSPLANT [None]
  - TOE AMPUTATION [None]
